FAERS Safety Report 21630034 (Version 3)
Quarter: 2022Q4

REPORT INFORMATION
  Report Type: Spontaneous
  Country: US (occurrence: US)
  Receive Date: 20221122
  Receipt Date: 20221212
  Transmission Date: 20230113
  Serious: Yes (Other)
  Sender: FDA-Public Use
  Company Number: US-KARYOPHARM-2022KPT001410

PATIENT

DRUGS (6)
  1. XPOVIO [Suspect]
     Active Substance: SELINEXOR
     Indication: Plasma cell myeloma
     Dosage: 60 MG, WEEKLY
     Route: 048
     Dates: start: 20220928
  2. VARUBI [ROLAPITANT] [Concomitant]
     Dosage: UNK
     Dates: start: 20221102
  3. ZOFRAN [Concomitant]
     Active Substance: ONDANSETRON HYDROCHLORIDE
  4. AMLODIPINE [Concomitant]
     Active Substance: AMLODIPINE BESYLATE
  5. ACYCLOVIR [Concomitant]
     Active Substance: ACYCLOVIR
  6. ASPIRIN [Concomitant]
     Active Substance: ASPIRIN

REACTIONS (2)
  - Thrombosis [Recovered/Resolved]
  - Decreased appetite [Unknown]

NARRATIVE: CASE EVENT DATE: 20221024
